FAERS Safety Report 11163243 (Version 2)
Quarter: 2019Q2

REPORT INFORMATION
  Report Type: Spontaneous
  Country: US (occurrence: US)
  Receive Date: 20150604
  Receipt Date: 20190418
  Transmission Date: 20190711
  Serious: No
  Sender: FDA-Public Use
  Company Number: US-SA-2014SA010281

PATIENT
  Age: 69 Year
  Sex: Female

DRUGS (4)
  1. LANTUS SOLOSTAR [Suspect]
     Active Substance: INSULIN GLARGINE
     Dosage: 58 DF,QD
     Route: 058
  2. LANTUS SOLOSTAR [Suspect]
     Active Substance: INSULIN GLARGINE
     Dosage: 58 DF,QD
     Route: 058
  3. LANTUS SOLOSTAR [Suspect]
     Active Substance: INSULIN GLARGINE
     Dosage: 10 DF,UNK
     Route: 058
     Dates: start: 201311
  4. LANTUS SOLOSTAR [Suspect]
     Active Substance: INSULIN GLARGINE
     Indication: TYPE 2 DIABETES MELLITUS
     Dosage: 10 DF,UNK
     Route: 058
     Dates: start: 201311

REACTIONS (3)
  - Blood glucose increased [Unknown]
  - Injection site haemorrhage [Unknown]
  - Injection site bruising [Unknown]
